FAERS Safety Report 9249019 (Version 1)
Quarter: 2013Q1

REPORT INFORMATION
  Report Type: Spontaneous
  Country: US (occurrence: None)
  Receive Date: 20130305
  Receipt Date: 20130305
  Transmission Date: 20140127
  Serious: Yes (Other)
  Sender: FDA-Public Use
  Company Number: 163-21880-12092498 (0)

PATIENT
  Age: 87 Year
  Sex: Female
  Weight: 54.25 kg

DRUGS (17)
  1. REVLIMID [Suspect]
     Indication: PLASMA CELL MYELOMA
     Dosage: 1 IN 1 D
     Route: 048
     Dates: start: 20120727
  2. UNSPECIFIED INGREDIENTS [Suspect]
  3. ASPIRIN [Suspect]
  4. BRINZOLAMIDE [Suspect]
  5. CALCIUM [Suspect]
  6. DEXAMETHASONE [Suspect]
  7. DULCOLAX [Suspect]
  8. DUONEB [Suspect]
  9. ENOXAPARIN [Suspect]
  10. FOLIC ACID [Suspect]
  11. MIRALAX [Suspect]
  12. SPIRIVA [Suspect]
  13. UNSPECIFIED INGREDIENTS [Suspect]
  14. TRAMADOL [Suspect]
  15. TRIMETHOPRIM SULFAMETHOXAZOLE [Suspect]
  16. VITAMIN B12 (CYANOCOBALAMIN) [Suspect]
  17. WARFARIN (WARFARIN) [Suspect]

REACTIONS (1)
  - Deep vein thrombosis [None]
